FAERS Safety Report 21298397 (Version 2)
Quarter: 2022Q3

REPORT INFORMATION
  Report Type: Spontaneous
  Country: TW (occurrence: TW)
  Receive Date: 20220906
  Receipt Date: 20220907
  Transmission Date: 20221027
  Serious: Yes (Other)
  Sender: FDA-Public Use
  Company Number: TW-PFIZER INC-202201111168

PATIENT
  Sex: Male

DRUGS (2)
  1. SUTENT [Suspect]
     Active Substance: SUNITINIB MALATE
     Indication: Renal cell carcinoma
     Dosage: 50 MG, ONCE DAILY,  2 WEEKS ON AND 1 WEEK OFF
     Route: 048
     Dates: start: 201907
  2. SUTENT [Suspect]
     Active Substance: SUNITINIB MALATE
     Dosage: UNK
     Route: 048
     Dates: start: 202207, end: 202208

REACTIONS (4)
  - Wound [Unknown]
  - Wound dehiscence [Unknown]
  - Dizziness [Unknown]
  - Fall [Unknown]
